FAERS Safety Report 6566846-9 (Version None)
Quarter: 2010Q1

REPORT INFORMATION
  Report Type: 
  Country: None (occurrence: None)
  Receive Date: 20100202
  Receipt Date: 20100127
  Transmission Date: 20100710
  Serious: Yes (Hospitalization)
  Sender: FDA-Public Use
  Company Number: B0605101A

PATIENT
  Sex: Female

DRUGS (5)
  1. CLAMOXYL [Suspect]
     Dosage: 1000MG THREE TIMES PER DAY
     Route: 048
     Dates: start: 20091024, end: 20091028
  2. PAROXETINE HCL [Concomitant]
     Indication: MAJOR DEPRESSION
     Dosage: 20MG PER DAY
     Route: 048
  3. LEVOTHYROXINE SODIUM [Concomitant]
     Indication: HYPOTHYROIDISM
     Dosage: 50MCG PER DAY
     Route: 048
  4. STILNOX [Concomitant]
     Indication: SLEEP DISORDER
     Dosage: 10MG PER DAY
     Route: 048
  5. HUMALOG [Concomitant]
     Dosage: .8IUH SEE DOSAGE TEXT
     Route: 023
     Dates: end: 20091026

REACTIONS (1)
  - HEPATOCELLULAR INJURY [None]
